FAERS Safety Report 4784303-7 (Version None)
Quarter: 2005Q3

REPORT INFORMATION
  Report Type: 
  Country: None (occurrence: None)
  Receive Date: 20050928
  Receipt Date: 20050919
  Transmission Date: 20060218
  Serious: Yes (Other)
  Sender: FDA-Public Use
  Company Number: 2005-07-2152

PATIENT
  Age: 38 Year
  Sex: Female
  Weight: 108.4097 kg

DRUGS (20)
  1. PEG-INTRON (PEGINTERFERON ALFA-2B) INJECTABLE [Suspect]
     Indication: HEPATITIS C
     Dosage: SEE IMAGE
     Route: 058
     Dates: start: 20020901, end: 20030201
  2. PEG-INTRON (PEGINTERFERON ALFA-2B) INJECTABLE [Suspect]
     Indication: HEPATITIS C
     Dosage: SEE IMAGE
     Route: 058
     Dates: start: 20020901, end: 20040617
  3. REBETOL [Suspect]
     Indication: HEPATITIS C
     Dosage: SEE IMAGE
     Route: 048
     Dates: start: 20020901, end: 20030201
  4. REBETOL [Suspect]
     Indication: HEPATITIS C
     Dosage: SEE IMAGE
     Route: 048
     Dates: start: 20030901, end: 20031104
  5. REBETOL [Suspect]
     Indication: HEPATITIS C
     Dosage: SEE IMAGE
     Route: 048
     Dates: start: 20020901, end: 20040421
  6. REBETOL [Suspect]
     Indication: HEPATITIS C
     Dosage: SEE IMAGE
     Route: 048
     Dates: start: 20031105, end: 20040421
  7. EFEXOR XR (VENLAFAXINE HCL) [Concomitant]
  8. ATIVAN [Concomitant]
  9. ZITHROMAX [Concomitant]
  10. TALWIN [Concomitant]
  11. BACTRIM [Concomitant]
  12. HUMIBID [Concomitant]
  13. ESTROGEN NOS [Concomitant]
  14. PREVACID [Concomitant]
  15. DETROL LA (TOLTERODINE TARTRATE) [Concomitant]
  16. URIMAR -T (HEXAMINE/SALOL/HYOSCYAMINE/,METHYLENE BLUE/SODIUM PHOSPHATE [Concomitant]
  17. ATIVAN [Concomitant]
  18. ATENOLOL [Concomitant]
  19. PAXIL [Concomitant]
  20. TESTOSTERONE [Concomitant]

REACTIONS (19)
  - ABDOMINAL PAIN [None]
  - BLOOD PRESSURE INCREASED [None]
  - BRONCHITIS [None]
  - CRYING [None]
  - DENTAL CARIES [None]
  - DEPRESSION [None]
  - DIARRHOEA [None]
  - DRUG DOSE OMISSION [None]
  - DRUG INEFFECTIVE [None]
  - GASTRIC ULCER [None]
  - IMPAIRED GASTRIC EMPTYING [None]
  - IRRITABILITY [None]
  - MUSCLE SPASMS [None]
  - NAUSEA [None]
  - SALIVARY GLAND CALCULUS [None]
  - TOOTH EXTRACTION [None]
  - TOOTH FRACTURE [None]
  - TREATMENT NONCOMPLIANCE [None]
  - WHITE BLOOD CELL COUNT DECREASED [None]
